FAERS Safety Report 25537950 (Version 1)
Quarter: 2025Q3

REPORT INFORMATION
  Report Type: Other
  Country: CN (occurrence: CN)
  Receive Date: 20250710
  Receipt Date: 20250710
  Transmission Date: 20251021
  Serious: Yes (Hospitalization, Other)
  Sender: AKESO BIOPHARMA CO., LTD.
  Company Number: CN-Akeso Biopharma Co., Ltd.-2180244

PATIENT
  Age: 72 Year
  Sex: Female

DRUGS (3)
  1. PENPULIMAB-KCQX [Suspect]
     Active Substance: PENPULIMAB-KCQX
     Indication: Malignant fibrous histiocytoma
  2. PENPULIMAB-KCQX [Suspect]
     Active Substance: PENPULIMAB-KCQX
     Indication: Bone cancer metastatic
  3. DENOSUMAB [Concomitant]
     Active Substance: DENOSUMAB

REACTIONS (1)
  - Immune thrombocytopenia [Recovered/Resolved]
